FAERS Safety Report 4826211-9 (Version None)
Quarter: 2005Q4

REPORT INFORMATION
  Report Type: 
  Country: None (occurrence: None)
  Receive Date: 20051014
  Receipt Date: 20050719
  Transmission Date: 20060501
  Serious: No
  Sender: FDA-Public Use
  Company Number: 2005SP001948

PATIENT
  Age: 52 Year
  Sex: Male
  Weight: 127.9144 kg

DRUGS (5)
  1. LUNESTA [Suspect]
     Indication: SOMNOLENCE
     Dosage: 3 MG;HS;ORAL
     Route: 048
     Dates: start: 20050715, end: 20050718
  2. ACTOS [Concomitant]
  3. ZOCOR [Concomitant]
  4. ULTRACET [Concomitant]
  5. ULTRAM [Concomitant]

REACTIONS (1)
  - DYSGEUSIA [None]
